FAERS Safety Report 5176617-6 (Version None)
Quarter: 2006Q4

REPORT INFORMATION
  Report Type: 
  Country: None (occurrence: None)
  Receive Date: 20061207
  Receipt Date: 20061128
  Transmission Date: 20070319
  Serious: Yes (Other)
  Sender: FDA-Public Use
  Company Number: 2006128791

PATIENT
  Age: 78 Year
  Sex: Male
  Weight: 45 kg

DRUGS (4)
  1. ZYVOX [Suspect]
     Indication: PNEUMONIA STAPHYLOCOCCAL
     Dosage: 1200 MG (600 MG, 2 IN 1 D), INTRAVENOUS
     Route: 042
     Dates: start: 20061015, end: 20061017
  2. SULPERAZON (SULBACTAM, CEFOPERAZONE) [Concomitant]
  3. AZITHROMYCIN [Concomitant]
  4. UNASYN [Concomitant]

REACTIONS (7)
  - CEREBRAL INFARCTION [None]
  - CLONIC CONVULSION [None]
  - CONVULSION [None]
  - DELIRIUM [None]
  - DEPRESSED LEVEL OF CONSCIOUSNESS [None]
  - HYPOAESTHESIA [None]
  - MYDRIASIS [None]
